FAERS Safety Report 14311716 (Version 1)
Quarter: 2017Q4

REPORT INFORMATION
  Report Type: Spontaneous
  Country: US (occurrence: US)
  Receive Date: 20171221
  Receipt Date: 20171221
  Transmission Date: 20180321
  Serious: Yes (Death)
  Sender: FDA-Public Use
  Company Number: US-ROCHE-2042405

PATIENT
  Age: 96 Year
  Sex: Female

DRUGS (1)
  1. RITUXAN [Suspect]
     Active Substance: RITUXIMAB
     Indication: B-CELL LYMPHOMA
     Dosage: DAY 1,8,15 AND 15;
     Route: 042
     Dates: start: 20171204, end: 20171213

REACTIONS (1)
  - Death [Fatal]

NARRATIVE: CASE EVENT DATE: 20171213
